FAERS Safety Report 5422775-5 (Version None)
Quarter: 2007Q3

REPORT INFORMATION
  Report Type: 
  Country: None (occurrence: None)
  Receive Date: 20070822
  Receipt Date: 20070813
  Transmission Date: 20080115
  Serious: Yes (Other)
  Sender: FDA-Public Use
  Company Number: GB-PFIZER INC-2007068116

PATIENT
  Age: 64 Year
  Sex: Female
  Weight: 74 kg

DRUGS (5)
  1. VARENICLINE TABLETS [Suspect]
     Indication: SMOKING CESSATION THERAPY
     Route: 048
     Dates: start: 20070716, end: 20070723
  2. BENDROFLUAZIDE [Concomitant]
     Route: 048
  3. LISINOPRIL [Concomitant]
     Route: 048
  4. OMEPRAZOLE [Concomitant]
     Route: 048
  5. SYMBICORT [Concomitant]
     Route: 055

REACTIONS (2)
  - MENTAL DISORDER [None]
  - NERVOUS SYSTEM DISORDER [None]
